FAERS Safety Report 8356689-8 (Version None)
Quarter: 2012Q2

REPORT INFORMATION
  Report Type: 
  Country: None (occurrence: None)
  Receive Date: 20120514
  Receipt Date: 20120510
  Transmission Date: 20120825
  Serious: Yes (Death, Disabling)
  Sender: FDA-Public Use
  Company Number: PHHO2011US07540

PATIENT
  Sex: Male

DRUGS (8)
  1. XANAX [Concomitant]
  2. TOPROL-XL [Concomitant]
  3. LEXAPRO [Concomitant]
  4. ASPIRIN [Concomitant]
  5. CARDURA [Concomitant]
  6. GLEEVEC [Suspect]
     Indication: CHRONIC MYELOID LEUKAEMIA
     Dosage: 400 MG, QD
     Route: 048
     Dates: start: 20010426
  7. CEFTIN [Concomitant]
  8. INTERFERON [Concomitant]
     Dosage: UNK
     Route: 058
     Dates: start: 20010121, end: 20010301

REACTIONS (3)
  - NEUROLOGICAL DECOMPENSATION [None]
  - AMYOTROPHIC LATERAL SCLEROSIS [None]
  - DEPRESSION [None]
